FAERS Safety Report 4761643-9 (Version None)
Quarter: 2005Q3

REPORT INFORMATION
  Report Type: 
  Country: None (occurrence: None)
  Receive Date: 20050906
  Receipt Date: 20050811
  Transmission Date: 20060218
  Serious: Yes (Death)
  Sender: FDA-Public Use
  Company Number: PHHO2005CA12813

PATIENT
  Age: 54 Year
  Sex: Male

DRUGS (8)
  1. CLOZARIL [Suspect]
     Indication: SCHIZOPHRENIA
     Dosage: 200 MG, BID
     Route: 048
     Dates: start: 19970416, end: 20050728
  2. NOVOLIN [Concomitant]
  3. AVAPRO [Concomitant]
  4. METFORMIN [Concomitant]
  5. LIPITOR [Concomitant]
  6. FLOVENT [Concomitant]
  7. NOVASEN [Concomitant]
  8. INSULIN [Concomitant]

REACTIONS (4)
  - ACUTE MYOCARDIAL INFARCTION [None]
  - ATHEROSCLEROSIS [None]
  - CARDIAC DEATH [None]
  - SUDDEN CARDIAC DEATH [None]
